APPROVED DRUG PRODUCT: BENDEKA
Active Ingredient: BENDAMUSTINE HYDROCHLORIDE
Strength: 100MG/4ML (25MG/ML)
Dosage Form/Route: SOLUTION;INTRAVENOUS
Application: N208194 | Product #001
Applicant: EAGLE PHARMACEUTICALS INC
Approved: Dec 7, 2015 | RLD: Yes | RS: Yes | Type: RX

PATENTS:
Patent 9144568 | Expires: Mar 15, 2033
Patent 9572797 | Expires: Jan 28, 2031
Patent 10052385 | Expires: Mar 15, 2033
Patent 9597399 | Expires: Mar 15, 2033
Patent 9597399 | Expires: Mar 15, 2033
Patent 9034908 | Expires: Mar 15, 2033
Patent 8609707 | Expires: Aug 11, 2031
Patent 10052385 | Expires: Mar 15, 2033
Patent 9597397 | Expires: Mar 15, 2033
Patent 9572887 | Expires: Mar 15, 2033
Patent 9572887 | Expires: Mar 15, 2033
Patent 9572796 | Expires: Jan 28, 2031
Patent 9572797 | Expires: Jan 28, 2031
Patent 9579384 | Expires: Mar 15, 2033
Patent 9579384 | Expires: Mar 15, 2033
Patent 9000021 | Expires: Mar 15, 2033
Patent 9572796 | Expires: Jan 28, 2031
Patent 9597397 | Expires: Mar 15, 2033
Patent 12350257 | Expires: Jan 28, 2031
Patent 12350257 | Expires: Jan 28, 2031
Patent 12350257 | Expires: Jan 28, 2031
Patent 9597398 | Expires: Mar 15, 2033
Patent 11103483 | Expires: Jan 28, 2031
Patent 11103483 | Expires: Jan 28, 2031
Patent 11844783 | Expires: Jan 28, 2031
Patent 11844783 | Expires: Jan 28, 2031
Patent 11844783 | Expires: Jan 28, 2031
Patent 8791270 | Expires: Jan 12, 2026
Patent 11872214 | Expires: Jan 28, 2031
Patent 12138248 | Expires: Jan 28, 2031
Patent 10010533 | Expires: Jan 28, 2031
Patent 9265831 | Expires: Jan 28, 2031